FAERS Safety Report 8146999-1 (Version None)
Quarter: 2012Q1

REPORT INFORMATION
  Report Type: 
  Country: None (occurrence: None)
  Receive Date: 20120217
  Receipt Date: 20120208
  Transmission Date: 20120608
  Serious: Yes (Hospitalization)
  Sender: FDA-Public Use
  Company Number: CY-ASTRAZENECA-2012SE09041

PATIENT
  Age: 63 Year
  Sex: Male
  Weight: 74 kg

DRUGS (5)
  1. BRILIQUE [Suspect]
     Indication: THROMBOSIS PROPHYLAXIS
     Route: 048
     Dates: start: 20120101, end: 20120201
  2. DAPRIL [Concomitant]
     Indication: HYPERTENSION
     Route: 048
  3. ASPIRIN [Concomitant]
     Indication: ATHEROSCLEROSIS PROPHYLAXIS
  4. AMLODIPINE [Concomitant]
     Indication: HYPERTENSION
  5. BISOPROLOL FUMARATE [Concomitant]
     Indication: HYPERTENSION

REACTIONS (2)
  - HAEMOGLOBIN DECREASED [None]
  - GASTROINTESTINAL HAEMORRHAGE [None]
